FAERS Safety Report 12781489 (Version 12)
Quarter: 2016Q4

REPORT INFORMATION
  Report Type: Spontaneous
  Country: US (occurrence: US)
  Receive Date: 20160926
  Receipt Date: 20161222
  Transmission Date: 20170207
  Serious: Yes (Hospitalization, Other)
  Sender: FDA-Public Use
  Company Number: US-GLAXOSMITHKLINE-US2016GSK138333

PATIENT
  Age: 65 Year
  Sex: Female

DRUGS (18)
  1. FLOLAN [Suspect]
     Active Substance: EPOPROSTENOL SODIUM
     Dosage: 18 NG/KG/MIN CONTINUOUS
     Route: 042
     Dates: start: 20160915
  2. FLOLAN [Suspect]
     Active Substance: EPOPROSTENOL SODIUM
     Dosage: 19 DF, CO
     Route: 042
  3. FLOLAN [Suspect]
     Active Substance: EPOPROSTENOL SODIUM
     Dosage: UNK, CO
  4. SILDENAFIL. [Concomitant]
     Active Substance: SILDENAFIL
  5. FLOLAN [Suspect]
     Active Substance: EPOPROSTENOL SODIUM
     Dosage: 18 NG/KG/MIN, CONTINUOUSLY
     Route: 042
  6. FLOLAN [Suspect]
     Active Substance: EPOPROSTENOL SODIUM
     Dosage: UNK, CO
  7. FLOLAN [Suspect]
     Active Substance: EPOPROSTENOL SODIUM
     Dosage: 18 NG/KG/MIN, CONTINUOUSLY
     Route: 042
  8. OPSUMIT [Concomitant]
     Active Substance: MACITENTAN
  9. FLOLAN [Suspect]
     Active Substance: EPOPROSTENOL SODIUM
     Indication: PULMONARY ARTERIAL HYPERTENSION
     Dosage: 17 NG/KG/MIN, CONTINUOUSLY
     Route: 042
     Dates: start: 20160915
  10. FLOLAN [Suspect]
     Active Substance: EPOPROSTENOL SODIUM
     Dosage: 18 NG/KG/MIN, CONTINUOUSLY
     Route: 042
  11. FLOLAN [Suspect]
     Active Substance: EPOPROSTENOL SODIUM
     Dosage: 20 NG/KG/MIN CONTINUOUS
     Route: 042
  12. FLOLAN [Suspect]
     Active Substance: EPOPROSTENOL SODIUM
     Dosage: 10 DF, CO
     Route: 042
  13. FLOLAN [Suspect]
     Active Substance: EPOPROSTENOL SODIUM
     Indication: PULMONARY ARTERIAL HYPERTENSION
     Dosage: UNK, CO
     Dates: start: 20160915
  14. LETAIRIS [Concomitant]
     Active Substance: AMBRISENTAN
  15. FLOLAN [Suspect]
     Active Substance: EPOPROSTENOL SODIUM
     Dosage: 20 NG/KG/MIN, CONTINUOUSLY
     Route: 042
  16. FLOLAN [Suspect]
     Active Substance: EPOPROSTENOL SODIUM
     Dosage: 20 DF, CO
     Route: 042
  17. FLOLAN [Suspect]
     Active Substance: EPOPROSTENOL SODIUM
     Dosage: UNK, CO
  18. REVATIO [Concomitant]
     Active Substance: SILDENAFIL CITRATE

REACTIONS (22)
  - Abdominal pain [Unknown]
  - Hospitalisation [Not Recovered/Not Resolved]
  - Blood pressure abnormal [Unknown]
  - Fluid overload [Unknown]
  - Fatigue [Unknown]
  - Pelvic pain [Unknown]
  - Pulmonary hypertension [Not Recovered/Not Resolved]
  - Abdominal distension [Unknown]
  - Cardiac disorder [Unknown]
  - Hypotension [Not Recovered/Not Resolved]
  - Condition aggravated [Not Recovered/Not Resolved]
  - Abdominal discomfort [Unknown]
  - Right ventricular failure [Not Recovered/Not Resolved]
  - Fluid retention [Unknown]
  - Weight increased [Recovering/Resolving]
  - Oedema [Unknown]
  - Dyspnoea exertional [Unknown]
  - Pain in jaw [Not Recovered/Not Resolved]
  - Dyspnoea [Not Recovered/Not Resolved]
  - Cardiac failure chronic [Not Recovered/Not Resolved]
  - General physical health deterioration [Unknown]
  - Dizziness [Unknown]

NARRATIVE: CASE EVENT DATE: 201609
